FAERS Safety Report 6836939-7 (Version None)
Quarter: 2010Q3

REPORT INFORMATION
  Report Type: 
  Country: None (occurrence: None)
  Receive Date: 20100708
  Receipt Date: 20100628
  Transmission Date: 20110219
  Serious: Yes (Other)
  Sender: FDA-Public Use
  Company Number: URSO-2010-070

PATIENT
  Age: 59 Year
  Sex: Female

DRUGS (1)
  1. URSO FORTE [Suspect]
     Indication: BILIARY CIRRHOSIS PRIMARY
     Dosage: 500MG TID

REACTIONS (1)
  - AUTOIMMUNE HEPATITIS [None]
